FAERS Safety Report 19361124 (Version 2)
Quarter: 2021Q2

REPORT INFORMATION
  Report Type: Spontaneous
  Country: BG (occurrence: BG)
  Receive Date: 20210601
  Receipt Date: 20210613
  Transmission Date: 20210717
  Serious: Yes (Other)
  Sender: FDA-Public Use
  Company Number: BG-SA-2021SA175676

PATIENT
  Age: 62 Year
  Sex: Female

DRUGS (6)
  1. CYCLOPHOSPHAMIDE. [Suspect]
     Active Substance: CYCLOPHOSPHAMIDE
     Indication: HER2 NEGATIVE BREAST CANCER
  2. DOCETAXEL. [Suspect]
     Active Substance: DOCETAXEL
     Indication: HER2 NEGATIVE BREAST CANCER
     Dosage: UNK UNK, QCY
  3. PERTUZUMAB. [Suspect]
     Active Substance: PERTUZUMAB
     Indication: HER2 NEGATIVE BREAST CANCER
     Dosage: UNK UNK, QCY
  4. EPIRUBICIN [Suspect]
     Active Substance: EPIRUBICIN
     Indication: HER2 NEGATIVE BREAST CANCER
  5. 5?FLUOROURACIL [FLUOROURACIL] [Suspect]
     Active Substance: FLUOROURACIL
     Indication: HER2 NEGATIVE BREAST CANCER
  6. TRASTUZUMAB. [Suspect]
     Active Substance: TRASTUZUMAB
     Indication: HER2 NEGATIVE BREAST CANCER
     Dosage: UNK UNK, QCY

REACTIONS (4)
  - Therapeutic response decreased [Unknown]
  - Metastases to liver [Unknown]
  - Metastases to lymph nodes [Unknown]
  - Pulmonary mass [Unknown]
